FAERS Safety Report 9927857 (Version 2)
Quarter: 2014Q1

REPORT INFORMATION
  Report Type: Report from Study
  Country: ZA (occurrence: ZA)
  Receive Date: 20140227
  Receipt Date: 20140227
  Transmission Date: 20141002
  Serious: Yes (Hospitalization)
  Sender: FDA-Public Use
  Company Number: ZA-ROCHE-1203153

PATIENT
  Sex: Male

DRUGS (5)
  1. MIRCERA [Suspect]
     Indication: PRODUCT USED FOR UNKNOWN INDICATION
     Route: 065
     Dates: start: 20120327
  2. MIRCERA [Suspect]
     Route: 065
     Dates: start: 20120801
  3. MIRCERA [Suspect]
     Route: 065
     Dates: start: 20130124
  4. RECORMON [Suspect]
     Indication: PRODUCT USED FOR UNKNOWN INDICATION
     Route: 065
     Dates: start: 20101207, end: 20120327
  5. RECORMON [Suspect]
     Indication: NEPHROGENIC ANAEMIA
     Route: 058
     Dates: start: 20130528

REACTIONS (4)
  - Infection [Unknown]
  - Chills [Unknown]
  - Medical device complication [Unknown]
  - Eye inflammation [Unknown]
